FAERS Safety Report 7314922-5 (Version None)
Quarter: 2011Q1

REPORT INFORMATION
  Report Type: 
  Country: None (occurrence: None)
  Receive Date: 20110225
  Receipt Date: 20100301
  Transmission Date: 20110831
  Serious: No
  Sender: FDA-Public Use
  Company Number: US-MYLANLABS-2010S1001856

PATIENT
  Age: 16 Year
  Sex: Male
  Weight: 68.04 kg

DRUGS (2)
  1. ALBUTEROL [Concomitant]
     Route: 055
  2. AMNESTEEM [Suspect]
     Indication: ACNE
     Route: 048

REACTIONS (3)
  - PRURITUS [None]
  - RASH [None]
  - DRUG ERUPTION [None]
